FAERS Safety Report 18000230 (Version 1)
Quarter: 2020Q3

REPORT INFORMATION
  Report Type: Spontaneous
  Country: CZ (occurrence: CZ)
  Receive Date: 20200709
  Receipt Date: 20200709
  Transmission Date: 20201103
  Serious: Yes (Other)
  Sender: FDA-Public Use
  Company Number: CZ-ACCORD-189721

PATIENT
  Age: 65 Year

DRUGS (2)
  1. FLUOROURACIL ACCORD [Suspect]
     Active Substance: FLUOROURACIL
     Indication: CHEMOTHERAPY
  2. FLUOROURACIL ACCORD [Suspect]
     Active Substance: FLUOROURACIL
     Indication: CHEMOTHERAPY

REACTIONS (2)
  - Gastrointestinal toxicity [Unknown]
  - Diarrhoea [Unknown]

NARRATIVE: CASE EVENT DATE: 2020
